FAERS Safety Report 4810872-4 (Version None)
Quarter: 2005Q4

REPORT INFORMATION
  Report Type: 
  Country: None (occurrence: None)
  Receive Date: 20051025
  Receipt Date: 20051025
  Transmission Date: 20060501
  Serious: Yes (Life-Threatening, Hospitalization)
  Sender: FDA-Public Use
  Company Number: None

PATIENT
  Sex: Male
  Weight: 93.2595 kg

DRUGS (16)
  1. DESMOPRESSIN ACETATE [Suspect]
     Dosage: IV
     Route: 042
     Dates: start: 20050826, end: 20050826
  2. AMMONIUM LACTATE [Concomitant]
  3. ASPIRIN [Concomitant]
  4. BRIMONIDINE [Concomitant]
  5. CALCIUM ACTEATE [Concomitant]
  6. CLOPIDOGREL [Concomitant]
  7. CLOTRIMAZOLE [Concomitant]
  8. DORZOLAMIDE/TIMOLOL [Concomitant]
  9. FUROSEMIDE [Concomitant]
  10. NPH INSULIN [Concomitant]
  11. LABETALOL [Concomitant]
  12. LATANOPROST [Concomitant]
  13. MINOXIDIL [Concomitant]
  14. MULTI-VITAMIN [Concomitant]
  15. RANITIDINE [Concomitant]
  16. SODIUM BICARBONATE [Concomitant]

REACTIONS (7)
  - BRADYCARDIA [None]
  - CARDIO-RESPIRATORY ARREST [None]
  - HYPOTENSION [None]
  - INFUSION RELATED REACTION [None]
  - PULMONARY ARTERIAL PRESSURE INCREASED [None]
  - SINUS TACHYCARDIA [None]
  - VENTRICULAR DYSKINESIA [None]
